FAERS Safety Report 6065608-9 (Version None)
Quarter: 2009Q1

REPORT INFORMATION
  Report Type: 
  Country: None (occurrence: None)
  Receive Date: 20090204
  Receipt Date: 20090121
  Transmission Date: 20090719
  Serious: Yes (Death)
  Sender: FDA-Public Use
  Company Number: IR-GENENTECH-271494

PATIENT
  Sex: Female

DRUGS (1)
  1. MABTHERA [Suspect]
     Indication: SYSTEMIC LUPUS ERYTHEMATOSUS
     Dosage: 1000 MG, UNK
     Route: 042
     Dates: start: 20080801, end: 20080801

REACTIONS (3)
  - CENTRAL NERVOUS SYSTEM LESION [None]
  - COMA [None]
  - STATUS EPILEPTICUS [None]
